FAERS Safety Report 7125590-X (Version None)
Quarter: 2010Q4

REPORT INFORMATION
  Report Type: 
  Country: None (occurrence: None)
  Receive Date: 20101129
  Receipt Date: 20080624
  Transmission Date: 20110411
  Serious: Yes (Other)
  Sender: FDA-Public Use
  Company Number: AU-ROCHE-741749

PATIENT
  Age: 60 Year
  Sex: Female

DRUGS (2)
  1. XELODA [Suspect]
     Indication: BLADDER CANCER
     Route: 065
  2. OXALIPLATIN [Concomitant]
     Indication: BLADDER CANCER

REACTIONS (1)
  - DISEASE PROGRESSION [None]
